FAERS Safety Report 26087050 (Version 1)
Quarter: 2025Q4

REPORT INFORMATION
  Report Type: Spontaneous
  Country: EU (occurrence: EU)
  Receive Date: 20251125
  Receipt Date: 20251125
  Transmission Date: 20260117
  Serious: Yes (Death, Other)
  Sender: RANBAXY
  Company Number: EU-SUN PHARMACEUTICAL INDUSTRIES LTD-2025RR-536009

PATIENT
  Age: 66 Year
  Sex: Male

DRUGS (6)
  1. AMOXICILLIN [Suspect]
     Active Substance: AMOXICILLIN
     Indication: Acinetobacter test positive
     Dosage: UNK
     Route: 065
  2. CIPROFLOXACIN [Suspect]
     Active Substance: CIPROFLOXACIN
     Indication: Acinetobacter test positive
     Dosage: UNK
     Route: 065
  3. MEROPENEM [Suspect]
     Active Substance: MEROPENEM
     Indication: Acinetobacter test positive
     Dosage: 1 GRAM, TID
     Route: 042
  4. PIPERACILLIN SODIUM\TAZOBACTAM SODIUM [Suspect]
     Active Substance: PIPERACILLIN SODIUM\TAZOBACTAM SODIUM
     Indication: Acinetobacter test positive
     Dosage: 4.5 GRAM, TID
     Route: 042
  5. CLAVULANIC ACID [Suspect]
     Active Substance: CLAVULANIC ACID
     Indication: Acinetobacter test positive
     Dosage: UNK
     Route: 065
  6. FOSFOMYCIN [Suspect]
     Active Substance: FOSFOMYCIN
     Indication: Acinetobacter test positive
     Dosage: 6 GRAM, QID
     Route: 042

REACTIONS (3)
  - Drug resistance [Fatal]
  - Septic shock [Unknown]
  - Self-medication [Unknown]
